FAERS Safety Report 16960135 (Version 1)
Quarter: 2019Q4

REPORT INFORMATION
  Report Type: Spontaneous
  Country: CN (occurrence: CN)
  Receive Date: 20191025
  Receipt Date: 20191025
  Transmission Date: 20200122
  Serious: Yes (Other)
  Sender: FDA-Public Use
  Company Number: CN-BAXTER-2019BAX021124

PATIENT
  Age: 40 Year
  Sex: Female
  Weight: 53 kg

DRUGS (8)
  1. ENDOXAN [Suspect]
     Active Substance: CYCLOPHOSPHAMIDE
     Indication: INVASIVE DUCTAL BREAST CARCINOMA
     Dosage: CYCLE 1 OF CHEMOTHERAPY, CYCLOPHOSPHAMIDE FOR INJECTION + SODIUM CHLORIDE INJECTION
     Route: 041
  2. 0.9% SODIUM CHLORIDE INJECTION [Suspect]
     Active Substance: SODIUM CHLORIDE
     Indication: MEDICATION DILUTION
     Dosage: CHEMOTHERAPY CYCLE 1, CYCLOPHOSPHAMIDE INJECTION +0.9%SODIUM CHLORIDE INJECTION
     Route: 041
  3. AIDASHENG [Suspect]
     Active Substance: EPIRUBICIN HYDROCHLORIDE
     Indication: INVASIVE DUCTAL BREAST CARCINOMA
     Dosage: CHEMOTHERAPY CYCLE 1, EPIRUBICIN HYDROCHLORIDE FOR INJECTION QD + SODIUM CHLORIDE INJECTION IVGTT
     Route: 041
  4. SODIUM CHLORIDE. [Suspect]
     Active Substance: SODIUM CHLORIDE
     Indication: MEDICATION DILUTION
     Dosage: CHEMOTHERAPY CYCLE 1, EPIRUBICIN HYDROCHLORIDE INJECTION + 0.9%SODIUM CHLORIDE INJECTION
     Route: 041
  5. SODIUM CHLORIDE. [Suspect]
     Active Substance: SODIUM CHLORIDE
     Dosage: CHEMOTHERAPY CYCLE 2, EPIRUBICIN HYDROCHLORIDE INJECTION 110MG QD + 0.9%SODIUM CHLORIDE INJECTION
     Route: 041
     Dates: start: 20191003, end: 20191003
  6. ENDOXAN [Suspect]
     Active Substance: CYCLOPHOSPHAMIDE
     Dosage: CHEMOTHERAPY CYCLE 2, CYCLOPHOSPHAMIDE FOR INJECTION + 0.9%SODIUM CHLORIDE INJECTION 100ML IVGTT
     Route: 041
     Dates: start: 20191003, end: 20191003
  7. 0.9% SODIUM CHLORIDE INJECTION [Suspect]
     Active Substance: SODIUM CHLORIDE
     Dosage: CHEMOTHERAPY CYCLE 2, CYCLOPHOSPHAMIDE INJECTION 1.0G QD +0.9%SODIUM CHLORIDE INJECTION
     Route: 041
     Dates: start: 20191003, end: 20191003
  8. AIDASHENG [Suspect]
     Active Substance: EPIRUBICIN HYDROCHLORIDE
     Dosage: CHEMOTHERAPY CYCLE 2, EPIRUBICIN HYDROCHLORIDE INJECTION + 0.9%SODIUM CHLORIDE INJECTION 100ML IVGTT
     Route: 041
     Dates: start: 20191003, end: 20191003

REACTIONS (3)
  - Decreased appetite [Recovering/Resolving]
  - Asthenia [Recovering/Resolving]
  - Bone marrow failure [Recovering/Resolving]

NARRATIVE: CASE EVENT DATE: 20191006
